FAERS Safety Report 12276028 (Version 1)
Quarter: 2016Q2

REPORT INFORMATION
  Report Type: Spontaneous
  Country: GB (occurrence: GB)
  Receive Date: 20160418
  Receipt Date: 20160418
  Transmission Date: 20160815
  Serious: Yes (Hospitalization)
  Sender: FDA-Public Use
  Company Number: GB-TEVA-651217ACC

PATIENT
  Age: 59 Year
  Sex: Male

DRUGS (12)
  1. TRIMETHOPRIM. [Suspect]
     Active Substance: TRIMETHOPRIM
  2. BACLOFEN. [Concomitant]
     Active Substance: BACLOFEN
  3. PARACETAMOL [Concomitant]
     Active Substance: ACETAMINOPHEN
  4. ZOPICLONE [Concomitant]
     Active Substance: ZOPICLONE
  5. ALVERINE CITRATE [Concomitant]
     Active Substance: ALVERINE CITRATE
  6. BISACODYL. [Concomitant]
     Active Substance: BISACODYL
  7. CLOPIDOGREL [Concomitant]
     Active Substance: CLOPIDOGREL BISULFATE
  8. ATORVASTATIN [Concomitant]
     Active Substance: ATORVASTATIN
  9. MOVICOL [Concomitant]
     Active Substance: POLYETHYLENE GLYCOL 3350\POTASSIUM CHLORIDE\SODIUM BICARBONATE\SODIUM CHLORIDE
  10. PIVMECILLINAM [Concomitant]
     Active Substance: PENICILLIN
  11. TRAMADOL. [Suspect]
     Active Substance: TRAMADOL
     Indication: PAIN
     Dosage: 50-100MG 4 TIMES A DAY
     Route: 048
     Dates: start: 201512, end: 20160127
  12. SERTRALINE [Concomitant]
     Active Substance: SERTRALINE HYDROCHLORIDE

REACTIONS (13)
  - Disorientation [Unknown]
  - Urinary tract infection bacterial [Unknown]
  - Seizure [Recovered/Resolved]
  - Loss of consciousness [Unknown]
  - Urinary incontinence [Unknown]
  - Malaise [Unknown]
  - Tongue biting [Unknown]
  - Feeling hot [Unknown]
  - Confusional state [Unknown]
  - Tremor [Unknown]
  - Unresponsive to stimuli [Unknown]
  - Constipation [Unknown]
  - Pollakiuria [Unknown]

NARRATIVE: CASE EVENT DATE: 20160127
